FAERS Safety Report 8142717 (Version 2)
Quarter: 2012Q4

REPORT INFORMATION
  Report Type: Report from Study
  Country: DE (occurrence: DE)
  Receive Date: 20110919
  Receipt Date: 20121016
  Transmission Date: 20130627
  Serious: Yes (Hospitalization)
  Sender: FDA-Public Use
  Company Number: DE-GLAXOSMITHKLINE-B0739059A

PATIENT
  Age: 59 Year
  Sex: Female
  Weight: 84 kg

DRUGS (3)
  1. LAPATINIB [Suspect]
     Indication: BREAST CANCER
     Dosage: 1250MG Per day
     Route: 048
     Dates: start: 20110719
  2. TAXOL [Suspect]
     Indication: BREAST CANCER
     Dosage: 327.25MG Every 3 weeks
     Route: 042
     Dates: start: 20110719
  3. MYOCET [Suspect]
     Indication: BREAST CANCER
     Dosage: 112.2MG Every 3 weeks
     Route: 042
     Dates: start: 20110719

REACTIONS (2)
  - Diarrhoea [Recovered/Resolved]
  - Renal failure acute [Recovered/Resolved]
